FAERS Safety Report 11506491 (Version 1)
Quarter: 2015Q3

REPORT INFORMATION
  Report Type: Spontaneous
  Country: US (occurrence: US)
  Receive Date: 20150915
  Receipt Date: 20150915
  Transmission Date: 20151125
  Serious: No
  Sender: FDA-Public Use
  Company Number: US-ROCHE-788142

PATIENT
  Sex: Female

DRUGS (2)
  1. RIBAVIRIN. [Suspect]
     Active Substance: RIBAVIRIN
     Indication: CHRONIC HEPATITIS C
     Dosage: DOSE: 1200 MG/DAY DIVIDED DOSES ORALLY,  REPORTED AS 48 WEEK THERAPY.
     Route: 048
  2. PEGASYS [Suspect]
     Active Substance: PEGINTERFERON ALFA-2A
     Indication: CHRONIC HEPATITIS C
     Dosage: DOSE: 180 MCG/WK,  REPORTED AS 48 WEEK THERAPY.
     Route: 058

REACTIONS (9)
  - Irritability [Unknown]
  - Hypoaesthesia [Unknown]
  - Memory impairment [Unknown]
  - Insomnia [Unknown]
  - Fatigue [Unknown]
  - Hepatic pain [Unknown]
  - Injection site bruising [Unknown]
  - Photosensitivity reaction [Unknown]
  - Tooth abscess [Unknown]
